FAERS Safety Report 8978427 (Version 1)
Quarter: 2012Q4

REPORT INFORMATION
  Report Type: Spontaneous
  Country: US (occurrence: None)
  Receive Date: 20121218
  Receipt Date: 20121218
  Transmission Date: 20130627
  Serious: No
  Sender: FDA-Public Use
  Company Number: None

PATIENT
  Sex: Male
  Weight: 88.18 kg

DRUGS (2)
  1. BUDEPROPION [Suspect]
     Indication: DEPRESSIVE DISORDER
     Dosage: 150 mg BID PO
     Route: 048
  2. BUDEPROPION [Suspect]
     Indication: DEPRESSIVE DISORDER

REACTIONS (4)
  - Fatigue [None]
  - Insomnia [None]
  - Impatience [None]
  - Product substitution issue [None]
